FAERS Safety Report 4951743-2 (Version None)
Quarter: 2006Q1

REPORT INFORMATION
  Report Type: 
  Country: None (occurrence: None)
  Receive Date: 20060323
  Receipt Date: 20060217
  Transmission Date: 20060701
  Serious: Yes (Other)
  Sender: FDA-Public Use
  Company Number: NL-GLAXOSMITHKLINE-B0413476A

PATIENT
  Age: 57 Year
  Sex: Female
  Weight: 55 kg

DRUGS (6)
  1. SUMATRIPTAN SUCCINATE [Suspect]
     Indication: MIGRAINE
     Dosage: 6MG UNKNOWN
     Route: 050
     Dates: start: 19910101, end: 20060214
  2. ENOXAPARIN SODIUM [Concomitant]
     Dates: start: 20060207, end: 20060303
  3. DICLOFENAC [Concomitant]
  4. OMEPRAZOLE [Concomitant]
  5. DAFALGAN [Concomitant]
     Route: 065
     Dates: start: 20060208, end: 20060214
  6. MEPHADOLOR [Concomitant]
     Dosage: 500MG THREE TIMES PER DAY
     Route: 065
     Dates: start: 20060208, end: 20060214

REACTIONS (7)
  - FEELING ABNORMAL [None]
  - FEELING COLD [None]
  - HYPERHIDROSIS [None]
  - LOSS OF CONSCIOUSNESS [None]
  - PAIN IN EXTREMITY [None]
  - PILOERECTION [None]
  - SHOCK [None]
